FAERS Safety Report 8450756-6 (Version None)
Quarter: 2012Q2

REPORT INFORMATION
  Report Type: 
  Country: None (occurrence: None)
  Receive Date: 20120620
  Receipt Date: 20120615
  Transmission Date: 20120825
  Serious: Yes (Hospitalization, Other)
  Sender: FDA-Public Use
  Company Number: FR-PFIZER INC-2012134372

PATIENT
  Age: 72 Year
  Sex: Female

DRUGS (12)
  1. ACEBUTOLOL [Concomitant]
     Dosage: UNK
  2. XANAX [Suspect]
     Dosage: UNK
     Route: 048
     Dates: start: 19900101, end: 20120202
  3. PANTOPRAZOLE [Concomitant]
     Dosage: UNK
  4. TRIHEXYPHENIDYL HYDROCHLORIDE [Concomitant]
     Dosage: UNK
  5. AMISULPRIDE [Suspect]
     Indication: HALLUCINATION
     Dosage: 25 MG, 2X/DAY
     Route: 048
     Dates: start: 19900101, end: 20120120
  6. ACETAMINOPHEN [Concomitant]
     Dosage: UNK
  7. LOSARTAN [Concomitant]
     Dosage: UNK
  8. CITALOPRAM [Concomitant]
     Dosage: UNK
  9. ZOLPIDEM [Suspect]
     Dosage: UNK
     Route: 048
     Dates: start: 19900101
  10. ARESTAL [Concomitant]
     Dosage: UNK
  11. TERCIAN [Suspect]
     Indication: HALLUCINATION
     Dosage: 0.5 DF, 1X/DAY
     Route: 048
     Dates: start: 19900101, end: 20120120
  12. ALUMINUM HYDROXIDE AND MAGNESIUM TRISILICATE [Concomitant]
     Dosage: UNK

REACTIONS (9)
  - DYSKINESIA [None]
  - INJURY [None]
  - CEREBRAL ISCHAEMIA [None]
  - FALL [None]
  - DYSARTHRIA [None]
  - EXTRAPYRAMIDAL DISORDER [None]
  - BALANCE DISORDER [None]
  - SLEEP APNOEA SYNDROME [None]
  - CONDITION AGGRAVATED [None]
